FAERS Safety Report 17088986 (Version 6)
Quarter: 2020Q4

REPORT INFORMATION
  Report Type: Spontaneous
  Country: FR (occurrence: FR)
  Receive Date: 20191128
  Receipt Date: 20201104
  Transmission Date: 20210113
  Serious: Yes (Hospitalization, Other)
  Sender: FDA-Public Use
  Company Number: FR-US-PROVELL PHARMACEUTICALS LLC-9069371

PATIENT
  Age: 74 Year
  Sex: Female
  Weight: 70 kg

DRUGS (2)
  1. TANGANIL [Concomitant]
     Active Substance: ACETYLLEUCINE
     Indication: LEUKOENCEPHALOPATHY
     Dates: start: 2016
  2. LEVOTHYROX [Suspect]
     Active Substance: LEVOTHYROXINE
     Indication: THYROID DISORDER
     Dates: start: 20170301, end: 2017

REACTIONS (17)
  - Deafness [Unknown]
  - Vertigo [Not Recovered/Not Resolved]
  - Blood cholesterol increased [Unknown]
  - Pneumonia [Unknown]
  - Joint injury [Unknown]
  - Blood uric acid increased [Unknown]
  - Impaired driving ability [Unknown]
  - Gamma-glutamyltransferase increased [Unknown]
  - Fall [Not Recovered/Not Resolved]
  - Dizziness [Not Recovered/Not Resolved]
  - Fatigue [Unknown]
  - Dysphonia [Unknown]
  - Mobility decreased [Unknown]
  - C-reactive protein increased [Unknown]
  - Tremor [Unknown]
  - Facial bones fracture [Unknown]
  - Asthenia [Unknown]

NARRATIVE: CASE EVENT DATE: 2017
